FAERS Safety Report 6670280-0 (Version None)
Quarter: 2010Q2

REPORT INFORMATION
  Report Type: 
  Country: None (occurrence: None)
  Receive Date: 20100405
  Receipt Date: 20100318
  Transmission Date: 20101027
  Serious: Yes (Death, Other)
  Sender: FDA-Public Use
  Company Number: 2010000950

PATIENT
  Age: 46 Year
  Sex: Female

DRUGS (1)
  1. TARCEVA [Suspect]
     Indication: NON-SMALL CELL LUNG CANCER
     Dosage: (100 MG), ORAL
     Route: 048
     Dates: start: 20080918, end: 20100303

REACTIONS (5)
  - INGROWING NAIL [None]
  - MALIGNANT NEOPLASM PROGRESSION [None]
  - NON-SMALL CELL LUNG CANCER [None]
  - PARONYCHIA [None]
  - SUDDEN DEATH [None]
